FAERS Safety Report 5734695-7 (Version None)
Quarter: 2008Q2

REPORT INFORMATION
  Report Type: 
  Country: None (occurrence: None)
  Receive Date: 20080508
  Receipt Date: 20080508
  Transmission Date: 20081010
  Serious: Yes (Death)
  Sender: FDA-Public Use
  Company Number: None

PATIENT
  Age: 48 Year
  Sex: Male
  Weight: 61.6892 kg

DRUGS (1)
  1. DIGITEK 0.125 MG MYLAN/BERTEK PHARMACEUTICALS [Suspect]
     Indication: CARDIAC FAILURE CONGESTIVE
     Dosage: 0.125 MG PO TABS  1 TABLET DAILY PO
     Route: 048
     Dates: start: 20040101, end: 20080122

REACTIONS (1)
  - DEATH [None]
